FAERS Safety Report 16813624 (Version 1)
Quarter: 2019Q3

REPORT INFORMATION
  Report Type: Report from Study
  Country: US (occurrence: US)
  Receive Date: 20190917
  Receipt Date: 20190917
  Transmission Date: 20191005
  Serious: Yes (Other)
  Sender: FDA-Public Use
  Company Number: US-ROCHE-2404841

PATIENT

DRUGS (2)
  1. BEVACIZUMAB. [Suspect]
     Active Substance: BEVACIZUMAB
     Indication: GLIOMA
     Dosage: 10 TO 15 MG/ KG
     Route: 065
  2. CARMUSTINE. [Suspect]
     Active Substance: CARMUSTINE
     Indication: GLIOMA
     Dosage: 150 MG/M2 OR MORE THAN 150 MG/M2 OR LESS THAN 150 MG/M2
     Route: 042

REACTIONS (8)
  - Blood bilirubin increased [Unknown]
  - Neutropenia [Unknown]
  - Leukopenia [Unknown]
  - Alanine aminotransferase increased [Unknown]
  - Lymphopenia [Unknown]
  - Anaemia [Unknown]
  - Aspartate aminotransferase increased [Unknown]
  - Thrombocytopenia [Unknown]
